FAERS Safety Report 18508282 (Version 2)
Quarter: 2020Q4

REPORT INFORMATION
  Report Type: Spontaneous
  Country: BR (occurrence: BR)
  Receive Date: 20201116
  Receipt Date: 20201228
  Transmission Date: 20210114
  Serious: Yes (Life-Threatening, Other)
  Sender: FDA-Public Use
  Company Number: BR-MALLINCKRODT-T202004997

PATIENT
  Sex: Female

DRUGS (3)
  1. AMITIZA [Suspect]
     Active Substance: LUBIPROSTONE
     Indication: CONSTIPATION
     Dosage: 30 UNITS
     Route: 065
  2. AMITIZA [Suspect]
     Active Substance: LUBIPROSTONE
     Dosage: 24 MICROGRAM, BID
     Route: 065
  3. AMITIZA [Suspect]
     Active Substance: LUBIPROSTONE
     Dosage: 24 MICROGRAM, QD
     Route: 065

REACTIONS (6)
  - Dyspnoea [Unknown]
  - Headache [Recovered/Resolved]
  - Laryngeal oedema [Recovered/Resolved]
  - Chest discomfort [Recovered/Resolved]
  - Tachycardia [Recovered/Resolved]
  - Hyperhidrosis [Recovered/Resolved]
